FAERS Safety Report 24560577 (Version 1)
Quarter: 2024Q4

REPORT INFORMATION
  Report Type: Spontaneous
  Country: US (occurrence: US)
  Receive Date: 20241029
  Receipt Date: 20241029
  Transmission Date: 20250114
  Serious: Yes (Hospitalization, Other)
  Sender: ASCENT PHARMACEUTICALS INC
  Company Number: US-ASCENT-2024ASLIT00052

PATIENT
  Age: 50 Year
  Sex: Female

DRUGS (2)
  1. HYDROMORPHONE HYDROCHLORIDE [Suspect]
     Active Substance: HYDROMORPHONE HYDROCHLORIDE
     Indication: Analgesic therapy
     Dosage: EVERY 2 HOURS AS NEEDED (196 MORPHINE MILI-EQUIVALENTS)
     Route: 065
  2. OXYCODONE HYDROCHLORIDE [Suspect]
     Active Substance: OXYCODONE HYDROCHLORIDE
     Indication: Myelopathy
     Dosage: EVERY 6 HOURS AS NEEDED (20 MORPHINE MILI-EQUIVALENTS)
     Route: 065

REACTIONS (2)
  - Empyema [Recovering/Resolving]
  - Aspiration [Recovering/Resolving]
